FAERS Safety Report 6524008-5 (Version None)
Quarter: 2009Q4

REPORT INFORMATION
  Report Type: 
  Country: None (occurrence: None)
  Receive Date: 20091230
  Receipt Date: 20091230
  Transmission Date: 20100525
  Serious: Yes (Hospitalization, Disabling)
  Sender: FDA-Public Use
  Company Number: None

PATIENT
  Age: 49 Year
  Sex: Male
  Weight: 63.9572 kg

DRUGS (2)
  1. XIFAXAN [Suspect]
     Indication: HEPATORENAL FAILURE
     Dosage: 200MG 2 TABS 3 TIMES A DAY BY MOUTH
     Route: 048
     Dates: start: 20081101
  2. XIFAXAN [Suspect]
     Indication: INFECTION
     Dosage: 200MG 2 TABS 3 TIMES A DAY BY MOUTH
     Route: 048
     Dates: start: 20081101

REACTIONS (1)
  - DRUG SCREEN POSITIVE [None]
